FAERS Safety Report 18149589 (Version 1)
Quarter: 2020Q3

REPORT INFORMATION
  Report Type: Spontaneous
  Country: IT (occurrence: IT)
  Receive Date: 20200814
  Receipt Date: 20200814
  Transmission Date: 20201103
  Serious: Yes (Other)
  Sender: FDA-Public Use
  Company Number: IT-BEH-2020120939

PATIENT
  Sex: Male

DRUGS (5)
  1. ASPIRIN (E.C.) [Suspect]
     Active Substance: ASPIRIN
     Route: 064
  2. INSULIN [Suspect]
     Active Substance: INSULIN NOS
     Route: 064
  3. HYDROXYCHLOROQUINE [Suspect]
     Active Substance: HYDROXYCHLOROQUINE
     Route: 064
  4. HUMAN IMMUNOGLOBULIN (INN) [Suspect]
     Active Substance: HUMAN IMMUNOGLOBULIN G
     Indication: PRODUCT USED FOR UNKNOWN INDICATION
     Route: 064
  5. LOW MOLECULAR WEIGHT HEPARIN SODIUM [Suspect]
     Active Substance: HEPARIN SODIUM
     Route: 064

REACTIONS (2)
  - Foetal growth restriction [Recovered/Resolved]
  - Foetal exposure during pregnancy [Recovered/Resolved]
